FAERS Safety Report 9084964 (Version 1)
Quarter: 2013Q1

REPORT INFORMATION
  Report Type: Spontaneous
  Country: US (occurrence: US)
  Receive Date: 20130130
  Receipt Date: 20130130
  Transmission Date: 20140127
  Serious: No
  Sender: FDA-Public Use
  Company Number: US-ABBOTT-12P-163-0983682-00

PATIENT
  Sex: 0

DRUGS (1)
  1. HUMIRA [Suspect]

REACTIONS (3)
  - Pruritus [Unknown]
  - Rash [Unknown]
  - Erythema [Unknown]
